FAERS Safety Report 10727558 (Version 2)
Quarter: 2015Q3

REPORT INFORMATION
  Report Type: Spontaneous
  Country: RU (occurrence: RU)
  Receive Date: 20150121
  Receipt Date: 20150707
  Transmission Date: 20151125
  Serious: Yes (Other)
  Sender: FDA-Public Use
  Company Number: RU-BAYER-2015-007757

PATIENT
  Age: 32 Year
  Sex: Female

DRUGS (1)
  1. YAZ PLUS [Suspect]
     Active Substance: DROSPIRENONE\ETHINYL ESTRADIOL
     Dosage: 1 DF, QD
     Route: 048

REACTIONS (3)
  - Appendicitis [Recovered/Resolved]
  - Vaginal haemorrhage [Recovered/Resolved]
  - Drug dose omission [None]

NARRATIVE: CASE EVENT DATE: 201501
